FAERS Safety Report 5842905-0 (Version None)
Quarter: 2008Q3

REPORT INFORMATION
  Report Type: 
  Country: None (occurrence: None)
  Receive Date: 20080813
  Receipt Date: 20080801
  Transmission Date: 20090109
  Serious: Yes (Other)
  Sender: FDA-Public Use
  Company Number: GR-BRISTOL-MYERS SQUIBB COMPANY-14279517

PATIENT
  Age: 47 Year
  Sex: Male

DRUGS (8)
  1. CYCLOPHOSPHAMIDE [Suspect]
     Indication: NON-HODGKIN'S LYMPHOMA
     Dosage: 750MG/M2 DAY1
     Route: 065
     Dates: start: 20050101, end: 20050801
  2. VINCRISTINE SULFATE [Suspect]
     Indication: NON-HODGKIN'S LYMPHOMA
     Dosage: 2MG DAY1
     Route: 065
     Dates: start: 20050101, end: 20050801
  3. DOXORUBICIN HCL [Suspect]
     Indication: NON-HODGKIN'S LYMPHOMA
     Dosage: 30MG/M2 DAY1
     Route: 065
     Dates: start: 20050101, end: 20050801
  4. RITUXIMAB [Suspect]
     Indication: NON-HODGKIN'S LYMPHOMA
     Dosage: 375 MG/M2 DAY1
     Route: 065
     Dates: start: 20050101, end: 20050801
  5. PREDNISONE TAB [Suspect]
     Indication: NON-HODGKIN'S LYMPHOMA
     Dosage: 100MG DAY1-5
     Route: 065
     Dates: start: 20050101, end: 20050801
  6. PEGINTERFERON ALFA-2A [Concomitant]
     Route: 058
  7. RIBAVIRIN [Concomitant]
     Route: 048
  8. INSULIN [Concomitant]
     Indication: DIABETES MELLITUS
     Dates: start: 20060101

REACTIONS (2)
  - ACUTE MYOCARDIAL INFARCTION [None]
  - HEPATITIS C [None]
